FAERS Safety Report 4478320-4 (Version None)
Quarter: 2004Q3

REPORT INFORMATION
  Report Type: 
  Country: None (occurrence: None)
  Receive Date: 20040923
  Receipt Date: 20040726
  Transmission Date: 20050211
  Serious: No
  Sender: FDA-Public Use
  Company Number: USA040773580

PATIENT
  Age: 63 Year
  Sex: Female
  Weight: 57 kg

DRUGS (6)
  1. FORTEO [Suspect]
     Indication: OSTEOPOROSIS
     Dates: start: 20040723
  2. CALCIUM [Concomitant]
  3. VITAMIN C [Concomitant]
  4. B-12 LATINO DEPOT (CYANOCOBALAMIN-TANNIN COMPLEX) [Concomitant]
  5. MULTIVITAMIN [Concomitant]
  6. VIACTIV [Concomitant]

REACTIONS (1)
  - DYSGEUSIA [None]
